FAERS Safety Report 5715060-5 (Version None)
Quarter: 2008Q2

REPORT INFORMATION
  Report Type: 
  Country: None (occurrence: None)
  Receive Date: 20080423
  Receipt Date: 20080415
  Transmission Date: 20081010
  Serious: Yes (Other)
  Sender: FDA-Public Use
  Company Number: NZ-PFIZER INC-2007076487

PATIENT
  Sex: Male

DRUGS (6)
  1. LIPITOR [Suspect]
     Dosage: DAILY DOSE:80MG
  2. CARTIA XT [Concomitant]
  3. OMEPRAZOLE [Concomitant]
  4. PARADEX [Concomitant]
     Dosage: FREQ:WHEN NECESSARY
  5. DICLOFENAC SODIUM [Concomitant]
     Dosage: DAILY DOSE:100MG-FREQ:DAILY
     Route: 048
  6. CILAZAPRIL [Concomitant]
     Dosage: DAILY DOSE:.5MG-FREQ:DAILY
     Route: 048

REACTIONS (12)
  - AMNESIA [None]
  - ASTHENIA [None]
  - ATRIAL FIBRILLATION [None]
  - DYSKINESIA [None]
  - FALL [None]
  - GAIT DISTURBANCE [None]
  - HYPOTENSION [None]
  - LOSS OF CONTROL OF LEGS [None]
  - MUSCLE ATROPHY [None]
  - MUSCLE SPASMS [None]
  - MUSCULAR WEAKNESS [None]
  - MYALGIA [None]
